FAERS Safety Report 6377633-9 (Version None)
Quarter: 2009Q3

REPORT INFORMATION
  Report Type: 
  Country: None (occurrence: None)
  Receive Date: 20090925
  Receipt Date: 20090910
  Transmission Date: 20100115
  Serious: Yes (Other)
  Sender: FDA-Public Use
  Company Number: CHPA2009US18394

PATIENT

DRUGS (3)
  1. 4 WAY FAST ACTING NASAL SPRAY (NCH) [Suspect]
     Indication: NASAL CONGESTION
     Dosage: UNK, Q4H
     Route: 045
     Dates: start: 20090801
  2. PSEUDOEPHEDRINE HCL [Concomitant]
     Indication: NASAL CONGESTION
     Dosage: UNK, UNK
     Route: 048
  3. IBUPROFEN [Concomitant]
     Indication: BACK PAIN
     Dosage: UNK, UNK
     Route: 048

REACTIONS (2)
  - DRUG DEPENDENCE [None]
  - INTENTIONAL DRUG MISUSE [None]
